FAERS Safety Report 7442622-X (Version None)
Quarter: 2011Q2

REPORT INFORMATION
  Report Type: 
  Country: None (occurrence: None)
  Receive Date: 20110426
  Receipt Date: 20110426
  Transmission Date: 20111010
  Serious: Yes (Hospitalization)
  Sender: FDA-Public Use
  Company Number: None

PATIENT
  Sex: Male
  Weight: 29.6 kg

DRUGS (7)
  1. LISDEXAMFETAMINE [Concomitant]
  2. ONCASPAR [Suspect]
     Dosage: 2800 IU
  3. VINCRISTINE SULFATE [Suspect]
     Dosage: 1.7 MG
  4. METHOTREXATE [Suspect]
     Dosage: 15 MG
  5. MELATONIN [Concomitant]
  6. DEXAMETHASONE [Suspect]
     Dosage: 6.5 MG
  7. CYTARABINE [Suspect]
     Dosage: 70 MG

REACTIONS (17)
  - ASPARTATE AMINOTRANSFERASE INCREASED [None]
  - SPECIFIC GRAVITY URINE DECREASED [None]
  - FLANK PAIN [None]
  - DYSSTASIA [None]
  - RESTLESS LEGS SYNDROME [None]
  - HYPONATRAEMIA [None]
  - URINE SODIUM INCREASED [None]
  - RED BLOOD CELLS URINE POSITIVE [None]
  - BLOOD TRIGLYCERIDES INCREASED [None]
  - ABASIA [None]
  - DRUG INTERACTION [None]
  - BLOOD BILIRUBIN INCREASED [None]
  - ALANINE AMINOTRANSFERASE INCREASED [None]
  - URINE OSMOLARITY DECREASED [None]
  - NEPHROLITHIASIS [None]
  - RENAL SALT-WASTING SYNDROME [None]
  - ABDOMINAL PAIN [None]
